FAERS Safety Report 20078681 (Version 1)
Quarter: 2021Q4

REPORT INFORMATION
  Report Type: Other
  Country: CA (occurrence: CA)
  Receive Date: 20211117
  Receipt Date: 20211117
  Transmission Date: 20220303
  Serious: Yes (Other)
  Sender: FDA-Public Use
  Company Number: CA-CELLTRION INC.-2021CA015028

PATIENT

DRUGS (1)
  1. RITUXIMAB [Suspect]
     Active Substance: RITUXIMAB
     Indication: Rheumatoid arthritis
     Dosage: 750 MG
     Route: 042

REACTIONS (4)
  - Follicular lymphoma [Unknown]
  - Marginal zone lymphoma [Unknown]
  - Rheumatoid arthritis [Unknown]
  - Off label use [Unknown]
